FAERS Safety Report 8601244-5 (Version None)
Quarter: 2012Q3

REPORT INFORMATION
  Report Type: 
  Country: None (occurrence: None)
  Receive Date: 20120817
  Receipt Date: 20120815
  Transmission Date: 20120928
  Serious: Yes (Hospitalization)
  Sender: FDA-Public Use
  Company Number: PHFR2012IE004517

PATIENT
  Sex: Male

DRUGS (3)
  1. CLOZARIL [Suspect]
     Indication: SCHIZOPHRENIA
     Dosage: 400 MG, QD
     Route: 048
     Dates: start: 20010701
  2. CLOZARIL [Suspect]
     Dosage: 50 MG, QD FOR FOUR DAYS
     Route: 048
  3. CLOZARIL [Suspect]
     Dosage: 200 MG, QD
     Route: 048

REACTIONS (1)
  - INCORRECT DOSE ADMINISTERED [None]
